FAERS Safety Report 7830535-0 (Version None)
Quarter: 2011Q4

REPORT INFORMATION
  Report Type: 
  Country: None (occurrence: None)
  Receive Date: 20111021
  Receipt Date: 20111013
  Transmission Date: 20120403
  Serious: Yes (Other)
  Sender: FDA-Public Use
  Company Number: GB-JNJFOC-20111007266

PATIENT
  Sex: Male

DRUGS (1)
  1. INTELENCE [Suspect]
     Indication: HIV INFECTION
     Route: 048

REACTIONS (3)
  - VISION BLURRED [None]
  - DEPRESSION [None]
  - INSOMNIA [None]
